FAERS Safety Report 8137468-3 (Version None)
Quarter: 2012Q1

REPORT INFORMATION
  Report Type: 
  Country: None (occurrence: None)
  Receive Date: 20120103
  Receipt Date: 20110908
  Transmission Date: 20120608
  Serious: No
  Sender: FDA-Public Use
  Company Number: AE-2011-001430

PATIENT
  Age: 52 Year
  Sex: Male
  Weight: 99.7913 kg

DRUGS (6)
  1. PEGASYS [Concomitant]
  2. INCIVEK [Suspect]
     Dosage: 2250 MG (750 MG, 3 IN 1 D), ORAL
     Route: 048
     Dates: start: 20110903
  3. LEXAPRO [Concomitant]
  4. JALYN [Concomitant]
  5. PROPRANOLOL [Concomitant]
  6. RIBAVIRIN [Concomitant]

REACTIONS (3)
  - DIARRHOEA [None]
  - ANORECTAL DISCOMFORT [None]
  - ANAL HAEMORRHAGE [None]
